FAERS Safety Report 8546649-6 (Version None)
Quarter: 2012Q3

REPORT INFORMATION
  Report Type: 
  Country: None (occurrence: None)
  Receive Date: 20120727
  Receipt Date: 20120123
  Transmission Date: 20120928
  Serious: No
  Sender: FDA-Public Use
  Company Number: US-ASTRAZENECA-2012SE04647

PATIENT
  Age: 28 Year
  Sex: Male
  Weight: 113.4 kg

DRUGS (3)
  1. SEROQUEL [Suspect]
     Indication: BIPOLAR I DISORDER
     Route: 048
  2. FLUOXETINE HCL [Concomitant]
  3. SEROQUEL [Suspect]
     Route: 048

REACTIONS (3)
  - FRUSTRATION [None]
  - DRUG EFFECT DECREASED [None]
  - DRUG DOSE OMISSION [None]
